FAERS Safety Report 11549322 (Version 1)
Quarter: 2015Q3

REPORT INFORMATION
  Report Type: Spontaneous
  Country: TR (occurrence: TR)
  Receive Date: 20150924
  Receipt Date: 20150924
  Transmission Date: 20151125
  Serious: Yes (Hospitalization)
  Sender: FDA-Public Use
  Company Number: TR-PRINSTON PHARMACEUTICAL INC.-2015PRN00074

PATIENT
  Age: 84 Year
  Sex: Female

DRUGS (4)
  1. DONEPEZIL. [Suspect]
     Active Substance: DONEPEZIL
     Indication: DEMENTIA ALZHEIMER^S TYPE
     Dosage: UNK
  2. RAMIPRIL. [Concomitant]
     Active Substance: RAMIPRIL
     Dosage: 5 MG, UNK
  3. ACETYLSALICYLIC ACID [Concomitant]
     Active Substance: ASPIRIN
     Dosage: 100 MG, UNK
  4. DONEPEZIL. [Suspect]
     Active Substance: DONEPEZIL
     Dosage: 10 MG, UNK

REACTIONS (10)
  - Electrocardiogram QT prolonged [Recovered/Resolved]
  - Haemodynamic instability [Recovered/Resolved]
  - Nausea [None]
  - Electrocardiogram QRS complex prolonged [Recovered/Resolved]
  - Atrial fibrillation [Recovered/Resolved]
  - Palpitations [None]
  - Torsade de pointes [Recovered/Resolved]
  - Syncope [None]
  - Somnolence [None]
  - Vomiting [None]
